FAERS Safety Report 4482536-0 (Version None)
Quarter: 2004Q4

REPORT INFORMATION
  Report Type: 
  Country: None (occurrence: None)
  Receive Date: 20041022
  Receipt Date: 20041004
  Transmission Date: 20050328
  Serious: Yes (Hospitalization)
  Sender: FDA-Public Use
  Company Number: PHRM2004FR03026

PATIENT
  Age: 60 Year
  Sex: Female
  Weight: 61 kg

DRUGS (2)
  1. TRILEPTAL [Suspect]
     Indication: APHASIA
     Dosage: 300 MG, BID
     Route: 048
  2. TAREG [Suspect]
     Indication: HYPERTENSION
     Dosage: UNK, UNK
     Route: 048

REACTIONS (3)
  - COUGH [None]
  - RASH [None]
  - SOLAR URTICARIA [None]
